FAERS Safety Report 5712805-5 (Version None)
Quarter: 2008Q2

REPORT INFORMATION
  Report Type: 
  Country: None (occurrence: None)
  Receive Date: 20080421
  Receipt Date: 20080421
  Transmission Date: 20081010
  Serious: Yes (Other)
  Sender: FDA-Public Use
  Company Number: None

PATIENT
  Age: 44 Year
  Sex: Male
  Weight: 65.7716 kg

DRUGS (1)
  1. NECON 0.5/35 WTSON LABS [Suspect]
     Indication: CONTRACEPTION
     Dosage: 1 DAILY
     Dates: start: 20080217, end: 20080325

REACTIONS (7)
  - DEPRESSION [None]
  - HEADACHE [None]
  - MENSTRUATION IRREGULAR [None]
  - METRORRHAGIA [None]
  - MUSCLE SPASMS [None]
  - NAUSEA [None]
  - PHARMACEUTICAL PRODUCT COMPLAINT [None]
